FAERS Safety Report 11474588 (Version 2)
Quarter: 2018Q1

REPORT INFORMATION
  Report Type: Spontaneous
  Country: US (occurrence: US)
  Receive Date: 20150908
  Receipt Date: 20180306
  Transmission Date: 20180508
  Serious: No
  Sender: FDA-Public Use
  Company Number: US-JAZZ-2014-US-004683

PATIENT
  Sex: Female

DRUGS (4)
  1. ANTIBIOTICS [Suspect]
     Active Substance: UNSPECIFIED INGREDIENT
     Indication: PRODUCT USED FOR UNKNOWN INDICATION
     Dosage: UNKNOWN DOSE
  2. XYREM [Suspect]
     Active Substance: SODIUM OXYBATE
     Dosage: 4.5 G, BID
     Route: 048
     Dates: start: 200904
  3. XYREM [Suspect]
     Active Substance: SODIUM OXYBATE
     Indication: IRREGULAR SLEEP WAKE RHYTHM DISORDER
     Dosage: 2 G, BID
     Route: 048
     Dates: start: 200701, end: 2007
  4. XYREM [Suspect]
     Active Substance: SODIUM OXYBATE
     Indication: NARCOLEPSY
     Dosage: DOSE ADJUSTMENT
     Route: 048

REACTIONS (2)
  - Pruritus [Unknown]
  - Infection [Unknown]
